FAERS Safety Report 5065075-8 (Version None)
Quarter: 2006Q3

REPORT INFORMATION
  Report Type: 
  Country: None (occurrence: None)
  Receive Date: 20060706
  Receipt Date: 20060516
  Transmission Date: 20061208
  Serious: No
  Sender: FDA-Public Use
  Company Number: 200613191BWH

PATIENT
  Age: 47 Year
  Sex: Male

DRUGS (3)
  1. LEVITRA [Suspect]
     Indication: ERECTILE DYSFUNCTION
     Dosage: 10 MG, OW, ORAL
     Route: 048
     Dates: start: 20060201, end: 20060322
  2. ALLEGRA [Concomitant]
  3. INJECTIONS [Concomitant]

REACTIONS (1)
  - PENIS DEVIATION [None]
